FAERS Safety Report 8928001 (Version 1)
Quarter: 2012Q4

REPORT INFORMATION
  Report Type: Spontaneous
  Country: US (occurrence: None)
  Receive Date: 20121126
  Receipt Date: 20121126
  Transmission Date: 20130627
  Serious: Yes (Other)
  Sender: FDA-Public Use
  Company Number: None

PATIENT

DRUGS (4)
  1. PULMICORT [Suspect]
     Indication: ALLERGY
     Dosage: 1 puff 2x day
     Route: 055
     Dates: start: 20040501, end: 20121101
  2. PULMICORT [Suspect]
     Indication: ASTHMA
     Dosage: 1 puff 2x day
     Route: 055
     Dates: start: 20040501, end: 20121101
  3. SYMBICORT [Suspect]
     Indication: ALLERGY
     Dosage: 2 puff 2xday
     Route: 055
     Dates: start: 20120301, end: 20120630
  4. SYMBICORT [Suspect]
     Indication: ASTHMA
     Dosage: 2 puff 2xday
     Route: 055
     Dates: start: 20120301, end: 20120630

REACTIONS (8)
  - Flatulence [None]
  - Drug effect decreased [None]
  - Feeling abnormal [None]
  - Lung disorder [None]
  - Malaise [None]
  - Peak expiratory flow rate decreased [None]
  - Incorrect dose administered [None]
  - Product compounding quality issue [None]
